FAERS Safety Report 13876950 (Version 2)
Quarter: 2017Q3

REPORT INFORMATION
  Report Type: Spontaneous
  Country: US (occurrence: US)
  Receive Date: 20170817
  Receipt Date: 20170912
  Transmission Date: 20171127
  Serious: Yes (Other)
  Sender: FDA-Public Use
  Company Number: US-JNJFOC-20170812891

PATIENT
  Sex: Male

DRUGS (1)
  1. ZYTIGA [Suspect]
     Active Substance: ABIRATERONE ACETATE
     Indication: PROSTATE CANCER
     Route: 048
     Dates: start: 20170718

REACTIONS (7)
  - Arthralgia [Unknown]
  - Pollakiuria [Unknown]
  - Hypertension [Unknown]
  - Pain [Unknown]
  - Diabetes mellitus [Unknown]
  - Red blood cell count decreased [Unknown]
  - Myalgia [Unknown]
